FAERS Safety Report 25399748 (Version 1)
Quarter: 2025Q2

REPORT INFORMATION
  Report Type: Spontaneous
  Country: US (occurrence: US)
  Receive Date: 20250605
  Receipt Date: 20250605
  Transmission Date: 20250716
  Serious: Yes (Other)
  Sender: JOHNSON AND JOHNSON
  Company Number: US-JNJFOC-20250535533

PATIENT
  Sex: Male

DRUGS (1)
  1. HALDOL DECANOATE [Suspect]
     Active Substance: HALOPERIDOL DECANOATE
     Indication: Product used for unknown indication
     Dosage: TWO DOSES AT 5 MG EACH ADMINISTERED 6 HOURS

REACTIONS (4)
  - Dementia Alzheimer^s type [Unknown]
  - Off label use [Unknown]
  - Incorrect dose administered [Unknown]
  - Overdose [Unknown]
